FAERS Safety Report 10464072 (Version 2)
Quarter: 2014Q4

REPORT INFORMATION
  Report Type: Report from Study
  Country: DE (occurrence: DE)
  Receive Date: 20140919
  Receipt Date: 20141110
  Transmission Date: 20150528
  Serious: Yes (Hospitalization)
  Sender: FDA-Public Use
  Company Number: DE-ABBVIE-14K-062-1285632-00

PATIENT
  Age: 38 Year
  Sex: Male
  Weight: 99 kg

DRUGS (1)
  1. HUMIRA [Suspect]
     Active Substance: ADALIMUMAB
     Indication: RHEUMATOID ARTHRITIS
     Route: 058
     Dates: start: 20110809

REACTIONS (4)
  - Polyneuropathy [Recovered/Resolved]
  - Bundle branch block right [Unknown]
  - Defect conduction intraventricular [Unknown]
  - Polyarthritis [Recovered/Resolved]

NARRATIVE: CASE EVENT DATE: 20130812
